FAERS Safety Report 7429609-8 (Version None)
Quarter: 2011Q2

REPORT INFORMATION
  Report Type: 
  Country: None (occurrence: None)
  Receive Date: 20110421
  Receipt Date: 20110415
  Transmission Date: 20111010
  Serious: Yes (Other)
  Sender: FDA-Public Use
  Company Number: B0710285A

PATIENT
  Age: 35 Year
  Sex: Female
  Weight: 56 kg

DRUGS (5)
  1. TRUVADA [Suspect]
     Indication: HIV INFECTION
     Dosage: 1IUAX PER DAY
     Route: 065
     Dates: start: 20110317, end: 20110318
  2. RITONAVIR [Suspect]
     Indication: HIV INFECTION
     Dosage: 100MG PER DAY
     Dates: end: 20110318
  3. LORATADINE [Concomitant]
     Dosage: 10MG PER DAY
     Dates: start: 20110317, end: 20110324
  4. KIVEXA [Suspect]
     Indication: HIV INFECTION
     Dosage: 1IUAX PER DAY
     Route: 065
     Dates: start: 20110307, end: 20110317
  5. DARUNAVIR [Suspect]
     Indication: HIV INFECTION
     Dosage: 800MG PER DAY
     Route: 048
     Dates: start: 20110307, end: 20110318

REACTIONS (3)
  - RASH GENERALISED [None]
  - MALAISE [None]
  - LIP SWELLING [None]
